FAERS Safety Report 9656392 (Version 3)
Quarter: 2013Q4

REPORT INFORMATION
  Report Type: Report from Study
  Country: DZ (occurrence: DZ)
  Receive Date: 20131030
  Receipt Date: 20131119
  Transmission Date: 20140711
  Serious: Yes (Life-Threatening, Other)
  Sender: FDA-Public Use
  Company Number: DZ-NOVOPROD-390710

PATIENT
  Age: 60 Year
  Sex: Female
  Weight: 70 kg

DRUGS (5)
  1. NOVORAPID FLEXPEN [Suspect]
     Indication: TYPE 2 DIABETES MELLITUS
     Dosage: 15 U, QD
     Route: 058
     Dates: start: 20130506
  2. NOVORAPID FLEXPEN [Suspect]
     Dosage: 14 U, QD
     Route: 058
     Dates: start: 20131014
  3. IDEG PDS290 [Suspect]
     Indication: TYPE 2 DIABETES MELLITUS
     Dosage: 12 U, QD
     Route: 058
     Dates: start: 20130506
  4. MICARDIS PLUS [Concomitant]
     Indication: HYPERTENSION
     Dosage: 12/5 40 MG
     Route: 048
     Dates: start: 20110905
  5. BRAZEPAM [Concomitant]
     Indication: ANXIETY
     Dosage: 10 MG X 1/2
     Route: 048
     Dates: start: 20130911

REACTIONS (1)
  - Hypoglycaemia [Recovered/Resolved]
